FAERS Safety Report 4676688-7 (Version None)
Quarter: 2005Q2

REPORT INFORMATION
  Report Type: 
  Country: None (occurrence: None)
  Receive Date: 20050527
  Receipt Date: 20050516
  Transmission Date: 20051028
  Serious: Yes (Hospitalization)
  Sender: FDA-Public Use
  Company Number: 2005CG00940

PATIENT
  Age: 63 Year
  Sex: Female
  Weight: 56 kg

DRUGS (20)
  1. ROPIVACAINE [Suspect]
     Indication: EPIDURAL ANAESTHESIA
     Route: 008
  2. ROPIVACAINE [Suspect]
     Route: 008
  3. ROPIVACAINE [Suspect]
     Route: 008
  4. ROPIVACAINE [Suspect]
     Route: 008
  5. ATENOLOL [Concomitant]
     Indication: HYPERTENSION
  6. L-THYROXINE [Concomitant]
     Indication: HYPOTHYROIDISM
  7. HYDROXYZINE [Concomitant]
     Indication: PREMEDICATION
     Route: 048
  8. SUFENTANIL CITRATE [Concomitant]
     Indication: EPIDURAL ANAESTHESIA
     Route: 008
  9. SUFENTANIL CITRATE [Concomitant]
     Indication: GENERAL ANAESTHESIA
     Route: 008
  10. SUFENTANIL CITRATE [Concomitant]
     Route: 042
  11. SUFENTANIL CITRATE [Concomitant]
     Route: 042
  12. ULTANE [Concomitant]
     Indication: GENERAL ANAESTHESIA
     Route: 055
  13. ATROPINE [Concomitant]
     Indication: HYPOTENSION
     Route: 042
  14. ATROPINE [Concomitant]
     Indication: BRADYCARDIA
     Route: 042
  15. RINGER'S [Concomitant]
     Indication: PLASMA EXPANDER TRANSFUSION
  16. EPHEDRINE SUL CAP [Concomitant]
     Indication: HYPOTENSION
     Route: 042
  17. EPHEDRINE SUL CAP [Concomitant]
     Indication: BRADYCARDIA
     Route: 042
  18. PARACETAMOL [Concomitant]
     Indication: PAIN
     Route: 042
  19. KETOPROFEN [Concomitant]
     Indication: PAIN
     Route: 042
  20. NEFOPAM [Concomitant]
     Indication: PAIN
     Route: 042

REACTIONS (4)
  - ANAESTHETIC COMPLICATION [None]
  - BRADYCARDIA [None]
  - HYPOTENSION [None]
  - MOVEMENT DISORDER [None]
